FAERS Safety Report 19218227 (Version 1)
Quarter: 2021Q2

REPORT INFORMATION
  Report Type: Spontaneous
  Country: US (occurrence: US)
  Receive Date: 20210502
  Receipt Date: 20210502
  Transmission Date: 20210717
  Serious: Yes (Other)
  Sender: FDA-Public Use
  Company Number: US-ASTRAZENECA-2021A358044

PATIENT
  Age: 17522 Day
  Sex: Male
  Weight: 134 kg

DRUGS (35)
  1. FARXIGA [Suspect]
     Active Substance: DAPAGLIFLOZIN PROPANEDIOL
     Route: 048
  2. CLINDAMYCIN. [Concomitant]
     Active Substance: CLINDAMYCIN
  3. OXYCODONE [Concomitant]
     Active Substance: OXYCODONE
  4. LISINOPRIL. [Concomitant]
     Active Substance: LISINOPRIL
  5. METOCLOPRAMIDE. [Concomitant]
     Active Substance: METOCLOPRAMIDE
  6. CEPHALEXIN. [Concomitant]
     Active Substance: CEPHALEXIN
  7. DAPAGLIFLOZIN. [Concomitant]
     Active Substance: DAPAGLIFLOZIN
  8. AMLODIPINE [Concomitant]
     Active Substance: AMLODIPINE BESYLATE
  9. GLIPIZIDE. [Concomitant]
     Active Substance: GLIPIZIDE
  10. KEFLEX [Concomitant]
     Active Substance: CEPHALEXIN
  11. LINEZOLID. [Concomitant]
     Active Substance: LINEZOLID
  12. SULFAMETHOXAZOLE [Concomitant]
     Active Substance: SULFAMETHOXAZOLE
  13. ZOSYN [Concomitant]
     Active Substance: PIPERACILLIN SODIUM\TAZOBACTAM SODIUM
  14. PROPOFOL. [Concomitant]
     Active Substance: PROPOFOL
  15. FAMOTIDINE. [Concomitant]
     Active Substance: FAMOTIDINE
  16. MIDAZOLAM. [Concomitant]
     Active Substance: MIDAZOLAM
  17. XIGDUO XR [Concomitant]
     Active Substance: DAPAGLIFLOZIN PROPANEDIOL\METFORMIN HYDROCHLORIDE
  18. ACETAMINOPHEN. [Concomitant]
     Active Substance: ACETAMINOPHEN
  19. METHYLPREDNISOLONE. [Concomitant]
     Active Substance: METHYLPREDNISOLONE
  20. EPINEPHRINE. [Concomitant]
     Active Substance: EPINEPHRINE
  21. METRONIDAZOLE. [Concomitant]
     Active Substance: METRONIDAZOLE
  22. SODIUM CHLORIDE. [Concomitant]
     Active Substance: SODIUM CHLORIDE
  23. HYDROMORPHONE [Concomitant]
     Active Substance: HYDROMORPHONE
  24. ONDANSETRON [Concomitant]
     Active Substance: ONDANSETRON
  25. MAGNESIUM SULFATE. [Concomitant]
     Active Substance: MAGNESIUM SULFATE
  26. METOPROLOL. [Concomitant]
     Active Substance: METOPROLOL
  27. METHYLPREDNISOLONE. [Concomitant]
     Active Substance: METHYLPREDNISOLONE
  28. CLONIDINE. [Concomitant]
     Active Substance: CLONIDINE
  29. PRAVASTATIN. [Concomitant]
     Active Substance: PRAVASTATIN
  30. CEFTRIAXONE. [Concomitant]
     Active Substance: CEFTRIAXONE
  31. PHENYLEPHRINE [Concomitant]
     Active Substance: PHENYLEPHRINE HYDROCHLORIDE
  32. DAPAGLIFLOZIN. [Concomitant]
     Active Substance: DAPAGLIFLOZIN
  33. VANCOMYCIN [Concomitant]
     Active Substance: VANCOMYCIN
  34. LIDOCAINE. [Concomitant]
     Active Substance: LIDOCAINE
  35. LIDOCAINE. [Concomitant]
     Active Substance: LIDOCAINE

REACTIONS (10)
  - Groin abscess [Unknown]
  - Sepsis [Unknown]
  - Hyperglycaemia [Unknown]
  - Diabetes mellitus [Unknown]
  - Necrotising fasciitis [Unknown]
  - Obesity [Unknown]
  - Scrotal cellulitis [Unknown]
  - Folliculitis [Unknown]
  - Fascial infection [Unknown]
  - Hypertension [Unknown]

NARRATIVE: CASE EVENT DATE: 20160222
